FAERS Safety Report 4342632-5 (Version None)
Quarter: 2004Q2

REPORT INFORMATION
  Report Type: 
  Country: None (occurrence: None)
  Receive Date: 20040421
  Receipt Date: 20040419
  Transmission Date: 20050107
  Serious: Yes (Death, Hospitalization)
  Sender: FDA-Public Use
  Company Number: US-JNJFOC-20040402014

PATIENT
  Age: 80 Year
  Sex: Female

DRUGS (15)
  1. DURAGESIC [Suspect]
     Route: 062
     Dates: start: 20040301
  2. DURAGESIC [Suspect]
     Route: 062
     Dates: start: 20040301
  3. DURAGESIC [Suspect]
     Route: 062
     Dates: start: 20040301
  4. DILANTIN [Concomitant]
     Route: 049
  5. PAXIL [Concomitant]
     Route: 049
  6. CARDENE [Concomitant]
     Indication: ARRHYTHMIA
     Dosage: HALF OF A 20 MG TAB
     Route: 049
  7. CELEBREX [Concomitant]
     Route: 049
  8. EPOGEN [Concomitant]
  9. NEUPOGEN [Concomitant]
  10. TAPAZOLE [Concomitant]
  11. PROTONIX [Concomitant]
     Route: 049
  12. COMPAZINE [Concomitant]
     Indication: NAUSEA
     Route: 049
  13. MECLIZINE [Concomitant]
     Indication: DIZZINESS
     Route: 049
  14. FLUDROCORTISONE ACETATE [Concomitant]
     Dosage: HALF OF A 0.1 MG TAB EVERY OTHER DAY
     Route: 049
  15. ATIVAN [Concomitant]
     Indication: ANXIETY
     Route: 049

REACTIONS (3)
  - ABASIA [None]
  - DYSSTASIA [None]
  - GAIT DISTURBANCE [None]
